FAERS Safety Report 22202685 (Version 3)
Quarter: 2023Q4

REPORT INFORMATION
  Report Type: Spontaneous
  Country: CA (occurrence: CA)
  Receive Date: 20230412
  Receipt Date: 20231108
  Transmission Date: 20240110
  Serious: Yes (Other)
  Sender: FDA-Public Use
  Company Number: CA-PFIZER INC-202200565684

PATIENT
  Age: 41 Year
  Sex: Male
  Weight: 104 kg

DRUGS (5)
  1. RUXIENCE [Suspect]
     Active Substance: RITUXIMAB-PVVR
     Indication: Granulomatosis with polyangiitis
     Dosage: 1 G, DAY 1, DAY 15, EVERY 6 MONTHS
     Route: 042
     Dates: start: 20220902, end: 20220921
  2. RUXIENCE [Suspect]
     Active Substance: RITUXIMAB-PVVR
     Indication: Microscopic polyangiitis
     Dosage: 1 G, DAY 1, DAY 15, EVERY 6 MONTHS
     Route: 042
     Dates: start: 20220921
  3. RUXIENCE [Suspect]
     Active Substance: RITUXIMAB-PVVR
     Dosage: 1000 MG, DAY 1 DOSE (DAY 1 AND DAY 15)
     Route: 042
     Dates: start: 20230405, end: 20230420
  4. RUXIENCE [Suspect]
     Active Substance: RITUXIMAB-PVVR
     Dosage: 1000 MG, DAY 1 AND DAY15
     Route: 042
     Dates: start: 20231005
  5. RUXIENCE [Suspect]
     Active Substance: RITUXIMAB-PVVR
     Dosage: 1000 MG, AFTER 3 WEEKS AND 4 DAYS (DAY 1 AND DAY 15)
     Route: 042
     Dates: start: 20231030

REACTIONS (4)
  - Nail injury [Recovered/Resolved]
  - Off label use [Unknown]
  - Intentional product use issue [Unknown]
  - Inappropriate schedule of product administration [Unknown]

NARRATIVE: CASE EVENT DATE: 20230401
